FAERS Safety Report 5006949-3 (Version None)
Quarter: 2006Q1

REPORT INFORMATION
  Report Type: 
  Country: None (occurrence: None)
  Receive Date: 20060320
  Receipt Date: 20051208
  Transmission Date: 20060701
  Serious: Yes (Other)
  Sender: FDA-Public Use
  Company Number: 2005-12-0397

PATIENT
  Sex: Female

DRUGS (4)
  1. PEG-INTRON [Suspect]
     Indication: HEPATITIS C
     Dosage: 150-12 QWK
     Dates: start: 20050310, end: 20051205
  2. REBETOL [Suspect]
     Indication: HEPATITIS C
     Dosage: 1200 MG QD ORAL
     Route: 048
     Dates: start: 20050310, end: 20051205
  3. DARVOCET [Concomitant]
  4. MOTRIN [Concomitant]

REACTIONS (3)
  - ANAEMIA [None]
  - DEPRESSION [None]
  - NEUTROPENIA [None]
